FAERS Safety Report 4947910-4 (Version None)
Quarter: 2006Q1

REPORT INFORMATION
  Report Type: 
  Country: None (occurrence: None)
  Receive Date: 20060314
  Receipt Date: 20060228
  Transmission Date: 20060701
  Serious: Yes (Other)
  Sender: FDA-Public Use
  Company Number: CIP06000509

PATIENT
  Age: 74 Year
  Sex: Female
  Weight: 73.0291 kg

DRUGS (3)
  1. ACTONEL [Suspect]
     Indication: OSTEOPOROSIS
     Dosage: 35 MG ONCE WEEKLY ORAL
     Route: 048
     Dates: end: 20051015
  2. ENALAPRIL MALEATE [Concomitant]
  3. LOVASTATIN [Concomitant]

REACTIONS (4)
  - ARTHRALGIA [None]
  - ARTHRITIS [None]
  - BODY TEMPERATURE INCREASED [None]
  - OEDEMA [None]
